FAERS Safety Report 22223057 (Version 1)
Quarter: 2023Q2

REPORT INFORMATION
  Report Type: Report from Study
  Country: EG (occurrence: EG)
  Receive Date: 20230418
  Receipt Date: 20230418
  Transmission Date: 20230721
  Serious: Yes (Other)
  Sender: FDA-Public Use
  Company Number: EG-002147023-NVSC2023EG088005

PATIENT
  Age: 39 Year
  Sex: Male

DRUGS (5)
  1. MAYZENT [Suspect]
     Active Substance: SIPONIMOD
     Indication: Multiple sclerosis
     Dosage: QD
     Route: 048
     Dates: start: 202303, end: 20230401
  2. MAYZENT [Suspect]
     Active Substance: SIPONIMOD
     Dosage: QD
     Route: 048
     Dates: start: 20230410
  3. MINERALS\VITAMINS [Concomitant]
     Active Substance: MINERALS\VITAMINS
     Indication: Supplementation therapy
     Dosage: QD
     Route: 048
  4. COBAL [Concomitant]
     Indication: Supplementation therapy
     Dosage: BID
     Route: 048
  5. ALFASIN [Concomitant]
     Indication: Back pain
     Dosage: QD, WHEN NEEDED
     Route: 048

REACTIONS (4)
  - Multiple sclerosis relapse [Recovering/Resolving]
  - Limb discomfort [Recovering/Resolving]
  - Gait inability [Recovering/Resolving]
  - Product supply issue [Unknown]

NARRATIVE: CASE EVENT DATE: 20230401
